FAERS Safety Report 20558302 (Version 1)
Quarter: 2022Q1

REPORT INFORMATION
  Report Type: Spontaneous
  Country: FR (occurrence: FR)
  Receive Date: 20220307
  Receipt Date: 20220307
  Transmission Date: 20220423
  Serious: Yes (Other)
  Sender: FDA-Public Use
  Company Number: FR-ABBVIE-22K-056-4297447-00

PATIENT
  Age: 28 Year
  Sex: Female

DRUGS (2)
  1. VALPROATE SODIUM [Suspect]
     Active Substance: VALPROATE SODIUM
     Indication: Epilepsy
     Route: 048
     Dates: start: 19940413
  2. VALPROATE SODIUM [Suspect]
     Active Substance: VALPROATE SODIUM
     Indication: Generalised tonic-clonic seizure
     Dosage: UNKNOWN INCREASED DOSE
     Route: 048
     Dates: end: 20100601

REACTIONS (9)
  - Seizure [Unknown]
  - Occipital neuralgia [Unknown]
  - Fatigue [Unknown]
  - Phonophobia [Unknown]
  - Photophobia [Unknown]
  - Anxiety [Unknown]
  - Headache [Unknown]
  - Migraine [Unknown]
  - Maternal exposure during pregnancy [Unknown]

NARRATIVE: CASE EVENT DATE: 20090915
